FAERS Safety Report 9189429 (Version 2)
Quarter: 2014Q2

REPORT INFORMATION
  Report Type: Report from Study
  Country: MX (occurrence: MX)
  Receive Date: 20130326
  Receipt Date: 20140409
  Transmission Date: 20141212
  Serious: Yes (Death, Hospitalization, Other)
  Sender: FDA-Public Use
  Company Number: PHHY2013MX029063

PATIENT
  Age: 94 Year
  Sex: Male

DRUGS (2)
  1. EXELON [Suspect]
     Dosage: 4.6 MG, DAILY
     Dates: start: 201101
  2. EXELON PATCH [Suspect]
     Indication: MEMORY IMPAIRMENT
     Dosage: 4.6 MG, QD
     Route: 062
     Dates: start: 20110316, end: 201301

REACTIONS (3)
  - Metastases to bladder [Fatal]
  - Ureteric obstruction [Fatal]
  - Prostate cancer metastatic [Unknown]
